FAERS Safety Report 4581793-X (Version None)
Quarter: 2005Q1

REPORT INFORMATION
  Report Type: 
  Country: None (occurrence: None)
  Receive Date: 20050214
  Receipt Date: 20040204
  Transmission Date: 20050727
  Serious: No
  Sender: FDA-Public Use
  Company Number: US-GLAXOSMITHKLINE-A0501198A

PATIENT
  Age: 50 Year
  Sex: Female
  Weight: 94.1 kg

DRUGS (10)
  1. LAMICTAL [Suspect]
     Indication: BIPOLAR DISORDER
     Dosage: 200MG PER DAY
     Route: 048
     Dates: start: 20020507, end: 20040302
  2. RISPERDAL [Suspect]
     Indication: BIPOLAR DISORDER
     Dosage: 1MG PER DAY
     Route: 048
     Dates: start: 20020901
  3. LEXAPRO [Suspect]
     Indication: BIPOLAR DISORDER
     Dosage: 20MG PER DAY
     Route: 048
     Dates: start: 20030711
  4. MULTIVITAMIN [Concomitant]
  5. NEURONTIN [Concomitant]
     Indication: BIPOLAR DISORDER
     Dosage: 600MG PER DAY
     Dates: start: 20030223
  6. KLONOPIN [Concomitant]
     Indication: ANXIETY
     Dates: start: 20030225
  7. ADDERALL 10 [Concomitant]
     Indication: ATTENTION DEFICIT/HYPERACTIVITY DISORDER
     Dates: start: 20030711
  8. SYNTHROID [Concomitant]
     Dosage: .025MG PER DAY
  9. OMEGA 3 FATTY ACIDS [Concomitant]
     Dates: start: 20010101
  10. VITAMIN E [Concomitant]

REACTIONS (1)
  - ALOPECIA [None]
